FAERS Safety Report 6163919-X (Version None)
Quarter: 2009Q2

REPORT INFORMATION
  Report Type: 
  Country: None (occurrence: None)
  Receive Date: 20090422
  Receipt Date: 20090420
  Transmission Date: 20091009
  Serious: Yes (Life-Threatening, Hospitalization)
  Sender: FDA-Public Use
  Company Number: PT-GILEAD-2009-0021571

PATIENT
  Sex: Male
  Weight: 69 kg

DRUGS (6)
  1. TRUVADA [Suspect]
     Indication: HIV INFECTION
     Route: 048
     Dates: start: 20090217, end: 20090220
  2. CALCIUM FOLINATE [Concomitant]
     Indication: PROPHYLAXIS
     Route: 048
     Dates: start: 20090217
  3. TRIMETHOPRIM [Concomitant]
     Indication: PROPHYLAXIS
     Route: 048
  4. SULFAMETHOXAZOLE AND TRIMETHOPRIM [Concomitant]
     Indication: PROPHYLAXIS
     Dates: start: 20090217
  5. ATAZANAVIR SULFATE [Concomitant]
     Indication: HIV INFECTION
     Route: 048
     Dates: start: 20090217
  6. RITONAVIR [Concomitant]
     Indication: HIV INFECTION
     Route: 048
     Dates: start: 20090217

REACTIONS (2)
  - GENERALISED OEDEMA [None]
  - RASH [None]
